FAERS Safety Report 13531312 (Version 2)
Quarter: 2017Q3

REPORT INFORMATION
  Report Type: Spontaneous
  Country: US (occurrence: US)
  Receive Date: 20170510
  Receipt Date: 20170817
  Transmission Date: 20171127
  Serious: No
  Sender: FDA-Public Use
  Company Number: US-PFIZER INC-2017203097

PATIENT
  Age: 59 Year
  Sex: Female
  Weight: 82 kg

DRUGS (6)
  1. VITAMINS /00067501/ [Concomitant]
     Active Substance: VITAMINS
     Dosage: UNK
  2. LISINOPRIL. [Concomitant]
     Active Substance: LISINOPRIL
     Indication: BLOOD PRESSURE MEASUREMENT
     Dosage: UNK
  3. ASPIRIN /00002701/ [Concomitant]
     Active Substance: ASPIRIN
     Dosage: UNK
  4. AMLODIPINE [Concomitant]
     Active Substance: AMLODIPINE BESYLATE
     Indication: BLOOD PRESSURE MEASUREMENT
     Dosage: UNK
  5. LOVASTATIN. [Concomitant]
     Active Substance: LOVASTATIN
     Indication: BLOOD CHOLESTEROL
     Dosage: UNK
  6. CHANTIX [Suspect]
     Active Substance: VARENICLINE TARTRATE
     Indication: EX-TOBACCO USER
     Dosage: UNK
     Route: 048

REACTIONS (6)
  - Migraine [Unknown]
  - Sleep disorder [Unknown]
  - Vomiting [Unknown]
  - Headache [Unknown]
  - Pain [Unknown]
  - Sinusitis [Unknown]
